FAERS Safety Report 14816793 (Version 1)
Quarter: 2018Q2

REPORT INFORMATION
  Report Type: Spontaneous
  Country: NO (occurrence: NO)
  Receive Date: 20180426
  Receipt Date: 20180426
  Transmission Date: 20180711
  Serious: Yes (Hospitalization, Disabling)
  Sender: FDA-Public Use
  Company Number: NO-ELI_LILLY_AND_COMPANY-NO201804007723

PATIENT
  Age: 29 Year
  Sex: Male

DRUGS (5)
  1. STRATTERA [Suspect]
     Active Substance: ATOMOXETINE HYDROCHLORIDE
     Indication: PRODUCT USED FOR UNKNOWN INDICATION
     Dosage: 200 MG, DAILY
     Route: 048
  2. RAMIPRIL. [Concomitant]
     Active Substance: RAMIPRIL
     Dosage: 5 MG, DAILY
     Route: 048
  3. ESIDREX [Concomitant]
     Active Substance: HYDROCHLOROTHIAZIDE
     Dosage: 25 MG, DAILY
     Route: 048
  4. TRUXAL                             /00012101/ [Interacting]
     Active Substance: CHLORPROTHIXENE
     Indication: PSYCHIATRIC SYMPTOM
     Dosage: 75 MG, UNKNOWN
     Route: 048
     Dates: start: 20171229, end: 20171229
  5. NEBIDO [Concomitant]
     Active Substance: TESTOSTERONE UNDECANOATE
     Dosage: % OF VIAL NO REPORTED.
     Route: 030

REACTIONS (3)
  - Priapism [Recovered/Resolved with Sequelae]
  - Overdose [Unknown]
  - Drug interaction [Recovered/Resolved with Sequelae]

NARRATIVE: CASE EVENT DATE: 20171230
